FAERS Safety Report 23192994 (Version 3)
Quarter: 2023Q4

REPORT INFORMATION
  Report Type: Report from Study
  Country: JP (occurrence: JP)
  Receive Date: 20231116
  Receipt Date: 20231213
  Transmission Date: 20240109
  Serious: Yes (Death, Hospitalization)
  Sender: FDA-Public Use
  Company Number: JP-ABBVIE-5494695

PATIENT
  Age: 84 Year
  Sex: Male
  Weight: 44 kg

DRUGS (20)
  1. CARBIDOPA\LEVODOPA [Suspect]
     Active Substance: CARBIDOPA\LEVODOPA
     Indication: Parkinson^s disease
     Dosage: MD: 11 ML, CD: 1.7 ML/HR, ED: 1 ML/UNIT ? 1
     Route: 050
     Dates: start: 20180215, end: 20180222
  2. CARBIDOPA\LEVODOPA [Suspect]
     Active Substance: CARBIDOPA\LEVODOPA
     Dosage: MD: 6 ML, CD: 2.0 ML/HR, ED: 1 ML/UNIT ? 1
     Route: 050
     Dates: start: 20180223, end: 20180224
  3. CARBIDOPA\LEVODOPA [Suspect]
     Active Substance: CARBIDOPA\LEVODOPA
     Dosage: MD: 6 ML, CD: 1.9 ML/HR, ED: 1 ML/UNIT ? 1
     Route: 050
     Dates: start: 20180317, end: 20180409
  4. CARBIDOPA\LEVODOPA [Suspect]
     Active Substance: CARBIDOPA\LEVODOPA
     Dosage: MD: 6 ML, CD: 1.9 ML/HR, ED: 1 ML/UNIT ? 1
     Route: 050
     Dates: start: 20180225, end: 20180313
  5. CARBIDOPA\LEVODOPA [Concomitant]
     Active Substance: CARBIDOPA\LEVODOPA
     Indication: Parkinson^s disease
     Dosage: TIME INTERVAL: 0.08333333 DAYS
     Dates: start: 20180313, end: 20180316
  6. CARBIDOPA\LEVODOPA [Concomitant]
     Active Substance: CARBIDOPA\LEVODOPA
     Indication: Parkinson^s disease
     Dosage: TIME INTERVAL: 0.33333333 DAYS: 300 MILLIGRAM
     Dates: start: 20180413
  7. CARBOCYSTEINE [Concomitant]
     Active Substance: CARBOCYSTEINE
     Indication: Product used for unknown indication
     Dosage: 3 GRAM
     Dates: end: 20180409
  8. CARBOCYSTEINE [Concomitant]
     Active Substance: CARBOCYSTEINE
     Indication: Product used for unknown indication
     Dosage: FORM STRENGTH: 50 PERCENT
     Dates: end: 20180409
  9. LEVODOPA [Concomitant]
     Active Substance: LEVODOPA
     Indication: Parkinson^s disease
     Dosage: 50 MILLIGRAM
     Dates: start: 20180409, end: 20180412
  10. SENNOSIDES [Concomitant]
     Active Substance: SENNOSIDES
     Indication: Product used for unknown indication
     Dosage: 24 MILLIGRAM
     Dates: end: 20180409
  11. SENNOSIDES [Concomitant]
     Active Substance: SENNOSIDES
     Indication: Product used for unknown indication
     Dates: end: 20180409
  12. MAGNESIUM OXIDE [Concomitant]
     Active Substance: MAGNESIUM OXIDE
     Indication: Product used for unknown indication
     Dosage: 1.2 GRAM
     Dates: end: 20180404
  13. MAGNESIUM OXIDE [Concomitant]
     Active Substance: MAGNESIUM OXIDE
     Indication: Product used for unknown indication
     Dates: end: 20180404
  14. SODIUM CHLORIDE [Concomitant]
     Active Substance: SODIUM CHLORIDE
     Indication: Product used for unknown indication
     Dosage: 4.5 GRAM
     Dates: end: 20180409
  15. SODIUM CHLORIDE [Concomitant]
     Active Substance: SODIUM CHLORIDE
     Indication: Product used for unknown indication
     Dates: end: 20180409
  16. TULOBUTEROL [Concomitant]
     Active Substance: TULOBUTEROL
     Indication: Product used for unknown indication
     Dosage: 2 MILLIGRAM
     Dates: end: 20180409
  17. TULOBUTEROL [Concomitant]
     Active Substance: TULOBUTEROL
     Indication: Product used for unknown indication
     Dates: end: 20180409
  18. ROTIGOTINE [Concomitant]
     Active Substance: ROTIGOTINE
     Indication: Parkinson^s disease
     Dosage: 18 MILLIGRAM
     Dates: end: 20180409
  19. PANTETHINE [Concomitant]
     Active Substance: PANTETHINE
     Indication: Product used for unknown indication
     Dosage: 3 GRAM
     Dates: end: 20180409
  20. PANTETHINE [Concomitant]
     Active Substance: PANTETHINE
     Indication: Product used for unknown indication
     Dosage: FORM STRENGTH: 20 PERCENT
     Dates: end: 20180409

REACTIONS (3)
  - Death [Fatal]
  - Cardio-respiratory arrest [Unknown]
  - Asphyxia [Unknown]

NARRATIVE: CASE EVENT DATE: 20180409
